FAERS Safety Report 7111243-0 (Version None)
Quarter: 2010Q4

REPORT INFORMATION
  Report Type: 
  Country: None (occurrence: None)
  Receive Date: 20101118
  Receipt Date: 20100525
  Transmission Date: 20110411
  Serious: No
  Sender: FDA-Public Use
  Company Number: US-PFIZER INC-2006133756

PATIENT
  Sex: Female
  Weight: 41.723 kg

DRUGS (6)
  1. ZYVOX [Suspect]
     Indication: BRONCHITIS
     Dosage: 600 MG, 2X/DAY
     Route: 048
     Dates: start: 20061010
  2. ZYVOX [Suspect]
     Indication: STAPHYLOCOCCAL INFECTION
  3. ACETYLSALICYLIC ACID SRT [Concomitant]
  4. ZOCOR [Concomitant]
  5. FOSAMAX [Concomitant]
  6. DILTIAZEM [Concomitant]
     Indication: HYPERTENSION
     Dosage: UNK

REACTIONS (7)
  - APPETITE DISORDER [None]
  - ASTHENIA [None]
  - CHAPPED LIPS [None]
  - DRUG INEFFECTIVE [None]
  - GENERAL PHYSICAL HEALTH DETERIORATION [None]
  - INSOMNIA [None]
  - TONGUE DISORDER [None]
